FAERS Safety Report 21783686 (Version 3)
Quarter: 2023Q1

REPORT INFORMATION
  Report Type: Spontaneous
  Country: US (occurrence: US)
  Receive Date: 20221227
  Receipt Date: 20230109
  Transmission Date: 20230418
  Serious: No
  Sender: FDA-Public Use
  Company Number: US-PFIZER INC-202201388673

PATIENT
  Age: 66 Year
  Sex: Female

DRUGS (14)
  1. IBRANCE [Suspect]
     Active Substance: PALBOCICLIB
     Dosage: 125 MG, CYCLIC (ORAL DAILY ON DAYS 1 THROUGH 21 THEN 7 DAYS OFF, REPEAT EVERY 28 DAYS)
     Route: 048
     Dates: start: 20221121
  2. EXEMESTANE [Concomitant]
     Active Substance: EXEMESTANE
     Dosage: UNK
  3. PREDNISONE [Concomitant]
     Active Substance: PREDNISONE
     Dosage: UNK
  4. VICKS NYQUIL [Concomitant]
     Active Substance: ACETAMINOPHEN\DEXTROMETHORPHAN HYDROBROMIDE\DOXYLAMINE SUCCINATE
     Dosage: UNK
  5. SYNTHROID [Concomitant]
     Active Substance: LEVOTHYROXINE SODIUM
     Dosage: UNK
  6. VITAMIN C [Concomitant]
     Active Substance: ASCORBIC ACID
     Dosage: UNK
  7. OXYCODONE AND ACETAMINOPHEN [Concomitant]
     Active Substance: ACETAMINOPHEN\OXYCODONE HYDROCHLORIDE
     Dosage: UNK
  8. CHONDROITIN SULFATE (BOVINE)\GLUCOSAMINE HYDROCHLORIDE [Concomitant]
     Active Substance: CHONDROITIN SULFATE (BOVINE)\GLUCOSAMINE HYDROCHLORIDE
     Dosage: UNK
  9. CALCIUM 600 + D3 PLUS MINERALS [Concomitant]
     Dosage: UNK
  10. PANTOPRAZOLE SODIUM [Concomitant]
     Active Substance: PANTOPRAZOLE SODIUM
     Dosage: UNK
  11. HAIR SKIN NAILS [Concomitant]
     Dosage: UNK
  12. COLACE [Concomitant]
     Active Substance: DOCUSATE SODIUM
     Dosage: UNK
  13. CENTRUM ADULT B+ IRON [Concomitant]
     Dosage: UNK (18MG-0.4MG TABLET)
  14. AMLODIPINE BESYLATE [Concomitant]
     Active Substance: AMLODIPINE BESYLATE
     Dosage: UNK

REACTIONS (12)
  - Fatigue [Recovering/Resolving]
  - Back pain [Unknown]
  - Blood sodium decreased [Not Recovered/Not Resolved]
  - Blood glucose increased [Not Recovered/Not Resolved]
  - Blood chloride decreased [Not Recovered/Not Resolved]
  - Blood albumin decreased [Unknown]
  - Blood creatinine increased [Not Recovered/Not Resolved]
  - Globulins decreased [Not Recovered/Not Resolved]
  - Blood osmolarity decreased [Not Recovered/Not Resolved]
  - Albumin globulin ratio decreased [Not Recovered/Not Resolved]
  - Platelet count increased [Not Recovered/Not Resolved]
  - Nasopharyngitis [Not Recovered/Not Resolved]
